FAERS Safety Report 17510502 (Version 1)
Quarter: 2020Q1

REPORT INFORMATION
  Report Type: Spontaneous
  Country: US (occurrence: US)
  Receive Date: 20200306
  Receipt Date: 20200306
  Transmission Date: 20200409
  Serious: Yes (Hospitalization)
  Sender: FDA-Public Use
  Company Number: None

PATIENT
  Age: 17 Year
  Sex: Female

DRUGS (3)
  1. TRIKAFTA [Suspect]
     Active Substance: ELEXACAFTOR\IVACAFTOR\TEZACAFTOR
     Indication: CYSTIC FIBROSIS
     Route: 048
     Dates: start: 20191114
  2. KITABIS PAK [Concomitant]
     Active Substance: TOBRAMYCIN
     Dates: start: 20190605
  3. PULMOZYME [Concomitant]
     Active Substance: DORNASE ALFA
     Dates: start: 20180901

REACTIONS (3)
  - Infective pulmonary exacerbation of cystic fibrosis [None]
  - Influenza [None]
  - Rhinovirus infection [None]

NARRATIVE: CASE EVENT DATE: 20200306
